FAERS Safety Report 19136445 (Version 1)
Quarter: 2021Q2

REPORT INFORMATION
  Report Type: Report from Study
  Country: EG (occurrence: EG)
  Receive Date: 20210414
  Receipt Date: 20210414
  Transmission Date: 20210717
  Serious: Yes (Other)
  Sender: FDA-Public Use
  Company Number: NVSC2021EG080142

PATIENT
  Age: 56 Year
  Sex: Female

DRUGS (6)
  1. KISQALI [Suspect]
     Active Substance: RIBOCICLIB
     Indication: BREAST CANCER METASTATIC
     Dosage: 600 MG, TID
     Route: 048
     Dates: start: 20200621
  2. FEMARA [Suspect]
     Active Substance: LETROZOLE
     Indication: METASTASES TO BONE MARROW
  3. FEMARA [Suspect]
     Active Substance: LETROZOLE
     Indication: BREAST CANCER METASTATIC
     Dosage: 2.5 MG, QD
     Route: 048
     Dates: start: 20200614
  4. KISQALI [Suspect]
     Active Substance: RIBOCICLIB
     Indication: METASTASES TO BONE MARROW
  5. KISQALI [Suspect]
     Active Substance: RIBOCICLIB
     Indication: METASTASES TO LIVER
  6. FEMARA [Suspect]
     Active Substance: LETROZOLE
     Indication: METASTASES TO LIVER

REACTIONS (4)
  - Purulent discharge [Not Recovered/Not Resolved]
  - Varices oesophageal [Not Recovered/Not Resolved]
  - Product dose omission issue [Recovered/Resolved]
  - Rectal haemorrhage [Recovered/Resolved]

NARRATIVE: CASE EVENT DATE: 20201119
